FAERS Safety Report 9687922 (Version 5)
Quarter: 2013Q4

REPORT INFORMATION
  Report Type: Report from Study
  Country: FR (occurrence: FR)
  Receive Date: 20131114
  Receipt Date: 20131216
  Transmission Date: 20140711
  Serious: Yes (Death, Hospitalization)
  Sender: FDA-Public Use
  Company Number: FR-PFIZER INC-2013322369

PATIENT
  Age: 75 Year
  Sex: Female

DRUGS (6)
  1. CAMPTO [Suspect]
     Indication: COLORECTAL CANCER METASTATIC
     Dosage: ONLY 1 CYCLE WAS ADMINISTERED ON 04/JUN/2013 (300 MG,1 IN 3 WK)
     Route: 041
     Dates: start: 20130604, end: 20130604
  2. CAPECITABINE [Suspect]
     Indication: COLORECTAL CANCER METASTATIC
     Dosage: 500 MG, 2X/DAY (3 DF)
     Route: 048
     Dates: start: 20130604, end: 20130617
  3. CAPECITABINE [Suspect]
     Dosage: 500 MG, 2X/DAY (3 DF)
     Route: 048
     Dates: start: 20130625, end: 20130708
  4. BEVACIZUMAB [Suspect]
     Indication: COLORECTAL CANCER METASTATIC
     Dosage: ONLY 1 CYCLE WAS ADMINISTERED ON 04/JUN/2013 (440 MG,1 IN 3 WK)
     Route: 042
     Dates: start: 20130604, end: 20130604
  5. LOSARTAN [Concomitant]
     Indication: HYPERTENSION
     Dosage: 25 MG, 1X/DAY
     Route: 048
  6. TINZAPARIN SODIUM [Concomitant]
     Indication: THROMBOSIS
     Dosage: 0.5 MG, 1X/DAY
     Route: 058
     Dates: start: 20120927

REACTIONS (5)
  - Disease progression [Fatal]
  - Colorectal cancer metastatic [Fatal]
  - Diarrhoea [Not Recovered/Not Resolved]
  - Ileal fistula [Not Recovered/Not Resolved]
  - Ileal fistula [Not Recovered/Not Resolved]
